FAERS Safety Report 4373920-4 (Version None)
Quarter: 2004Q1

REPORT INFORMATION
  Report Type: 
  Country: None (occurrence: None)
  Receive Date: 20040305
  Receipt Date: 20040112
  Transmission Date: 20041129
  Serious: Yes (Other)
  Sender: FDA-Public Use
  Company Number: 2003UW16326

PATIENT
  Age: 76 Year
  Sex: Female
  Weight: 70.3075 kg

DRUGS (5)
  1. CRESTOR [Suspect]
     Indication: HYPERCHOLESTEROLAEMIA
     Dosage: 10 MG QD PO
     Route: 048
  2. SYNTHROID [Concomitant]
  3. PREVACID [Concomitant]
  4. FLONASE [Concomitant]
  5. HIGH BLOOD PRESSURE MEDICATION [Concomitant]

REACTIONS (5)
  - ABDOMINAL PAIN [None]
  - MUSCULAR WEAKNESS [None]
  - MYALGIA [None]
  - NAUSEA [None]
  - THIRST [None]
